FAERS Safety Report 5870242-7 (Version None)
Quarter: 2008Q3

REPORT INFORMATION
  Report Type: 
  Country: None (occurrence: None)
  Receive Date: 20080904
  Receipt Date: 20070921
  Transmission Date: 20090109
  Serious: No
  Sender: FDA-Public Use
  Company Number: US-BRISTOL-MYERS SQUIBB COMPANY-13705272

PATIENT
  Age: 57 Year
  Sex: Female
  Weight: 64 kg

DRUGS (29)
  1. DEFINITY [Suspect]
     Route: 040
  2. CEFTRIAXONE [Concomitant]
  3. RISPERIDONE [Concomitant]
  4. METOPROLOL TARTRATE [Concomitant]
  5. POTASSIUM CHLORIDE [Concomitant]
  6. NEXIUM [Concomitant]
  7. REGLAN [Concomitant]
  8. ATIVAN [Concomitant]
  9. IRON [Concomitant]
  10. DETROL LA [Concomitant]
  11. CYMBALTA [Concomitant]
  12. ALBUTEROL [Concomitant]
  13. INSULIN [Concomitant]
  14. PERCOCET [Concomitant]
  15. MORPHINE [Concomitant]
  16. COLACE [Concomitant]
  17. LASIX [Concomitant]
  18. MIRALAX [Concomitant]
     Route: 048
  19. VITAMIN D [Concomitant]
  20. TYLENOL (CAPLET) [Concomitant]
     Route: 048
  21. CORGARD [Concomitant]
  22. SYNTHROID [Concomitant]
  23. PRILOSEC [Concomitant]
  24. CRESTOR [Concomitant]
  25. BENTYL [Concomitant]
  26. PREDNISONE TAB [Concomitant]
  27. BENICAR [Concomitant]
  28. FIORINAL [Concomitant]
     Dosage: 50-325-40MG, (2)QD.
  29. K-DUR [Concomitant]

REACTIONS (1)
  - BACK PAIN [None]
